FAERS Safety Report 17799004 (Version 1)
Quarter: 2020Q2

REPORT INFORMATION
  Report Type: Report from Study
  Country: IT (occurrence: IT)
  Receive Date: 20200518
  Receipt Date: 20200518
  Transmission Date: 20200714
  Serious: Yes (Hospitalization)
  Sender: FDA-Public Use
  Company Number: IT-TEVA-2020-IT-1235862

PATIENT
  Age: 36 Year
  Sex: Female
  Weight: 69 kg

DRUGS (5)
  1. CARBOPLATINO TEVA 10 MG/ML [Suspect]
     Active Substance: CARBOPLATIN
     Indication: BREAST NEOPLASM
     Dosage: 300 MG
     Route: 042
     Dates: start: 20191213, end: 20200408
  2. PACLITAXEL KABI 6 MG/ML CONCENTRATO PER SOLUZIONE PER INFUSIONE [Suspect]
     Active Substance: PACLITAXEL
     Indication: BREAST NEOPLASM
     Dosage: 140 MG
     Route: 042
     Dates: start: 20191213, end: 20200408
  3. LYRICA [Concomitant]
     Active Substance: PREGABALIN
  4. SOLDESAM [Concomitant]
     Active Substance: DEXAMETHASONE
  5. LEVETIRACETAM TEVA 500 MG FILM-COATED TABLETS [Concomitant]

REACTIONS (3)
  - Neutropenia [Recovering/Resolving]
  - Pancytopenia [Recovering/Resolving]
  - Anaemia [Recovering/Resolving]

NARRATIVE: CASE EVENT DATE: 20200428
